FAERS Safety Report 20435822 (Version 1)
Quarter: 2022Q1

REPORT INFORMATION
  Report Type: Spontaneous
  Country: CN (occurrence: CN)
  Receive Date: 20220207
  Receipt Date: 20220207
  Transmission Date: 20220424
  Serious: Yes (Hospitalization)
  Sender: FDA-Public Use
  Company Number: None

PATIENT
  Age: 77 Year
  Sex: Male

DRUGS (2)
  1. INSULIN ASPART [Suspect]
     Active Substance: INSULIN ASPART
     Indication: Diabetes mellitus management
     Dosage: 30 IU, QD (15 IU, BID)
     Route: 058
     Dates: start: 20211208
  2. INSULIN ASPART [Suspect]
     Active Substance: INSULIN ASPART
     Dosage: 26 IU, QD (12U-8U-6U IH TID)
     Route: 058
     Dates: start: 20220114

REACTIONS (1)
  - Hypoglycaemic encephalopathy [Recovering/Resolving]

NARRATIVE: CASE EVENT DATE: 20220107
